FAERS Safety Report 22356403 (Version 1)
Quarter: 2023Q2

REPORT INFORMATION
  Report Type: Spontaneous
  Country: US (occurrence: None)
  Receive Date: 20230523
  Receipt Date: 20230523
  Transmission Date: 20230722
  Serious: No
  Sender: FDA-Public Use
  Company Number: None

PATIENT
  Age: 60 Year
  Sex: Female
  Weight: 83.91 kg

DRUGS (1)
  1. FLUTICASONE PROPIONATE [Suspect]
     Active Substance: FLUTICASONE PROPIONATE
     Indication: Multiple allergies
     Dosage: OTHER QUANTITY : 2 SPRAY (S);?FREQUENCY : TWICE A DAY;?
     Route: 055

REACTIONS (9)
  - Headache [None]
  - Dry mouth [None]
  - Myalgia [None]
  - Periorbital swelling [None]
  - Swelling of eyelid [None]
  - Toothache [None]
  - Epistaxis [None]
  - Rash [None]
  - Eyelids pruritus [None]

NARRATIVE: CASE EVENT DATE: 20230424
